FAERS Safety Report 5339160-7 (Version None)
Quarter: 2007Q2

REPORT INFORMATION
  Report Type: 
  Country: None (occurrence: None)
  Receive Date: 20070530
  Receipt Date: 20070521
  Transmission Date: 20071010
  Serious: Yes (Death)
  Sender: FDA-Public Use
  Company Number: JP-BOEHRINGER INGELHEIM PHARMACEUTICALS, INC.-2007-BP-06589NB

PATIENT
  Sex: Male
  Weight: 42 kg

DRUGS (3)
  1. BI-SIFROL TABLETS [Suspect]
     Indication: PARKINSON'S DISEASE
     Route: 048
     Dates: start: 20060421, end: 20070509
  2. CABASER [Suspect]
     Route: 048
     Dates: start: 20060216, end: 20060426
  3. MADOPAR [Concomitant]
     Indication: PARKINSON'S DISEASE
     Route: 048
     Dates: start: 20070126, end: 20070512

REACTIONS (3)
  - PLEURAL EFFUSION [None]
  - PLEURISY [None]
  - RESPIRATORY FAILURE [None]
